FAERS Safety Report 7042687-3 (Version None)
Quarter: 2010Q4

REPORT INFORMATION
  Report Type: 
  Country: None (occurrence: None)
  Receive Date: 20101013
  Receipt Date: 20100802
  Transmission Date: 20110411
  Serious: No
  Sender: FDA-Public Use
  Company Number: US-ASTRAZENECA-2010SE36081

PATIENT
  Age: 23 Year
  Sex: Female
  Weight: 79.4 kg

DRUGS (2)
  1. SYMBICORT [Suspect]
     Indication: ASTHMA
     Dosage: 80/4.5 MCG, ONE PUFF BID
     Route: 055
     Dates: start: 20100701
  2. SPIRIVA [Concomitant]
     Indication: ASTHMA

REACTIONS (3)
  - BACTERIAL INFECTION [None]
  - DRUG INEFFECTIVE [None]
  - INCREASED UPPER AIRWAY SECRETION [None]
